FAERS Safety Report 4619097-9 (Version None)
Quarter: 2005Q2

REPORT INFORMATION
  Report Type: 
  Country: None (occurrence: None)
  Receive Date: 20050321
  Receipt Date: 20041216
  Transmission Date: 20051028
  Serious: Yes (Other)
  Sender: FDA-Public Use
  Company Number: 2004-12-1016

PATIENT
  Sex: Male
  Weight: 96.6162 kg

DRUGS (2)
  1. PEG-INTRON [Suspect]
     Indication: HEPATITIS C
     Dosage: 150 MCG QWK SUBCUTANEOUS
     Route: 058
     Dates: start: 20040617, end: 20041116
  2. REBETOL [Suspect]
     Indication: HEPATITIS C
     Dosage: 1200 MG QD ORAL
     Route: 048
     Dates: start: 20040617, end: 20041116

REACTIONS (8)
  - AGGRESSION [None]
  - ANOREXIA [None]
  - ARTHRALGIA [None]
  - DEPRESSION [None]
  - HEADACHE [None]
  - MYALGIA [None]
  - NAUSEA [None]
  - NONSPECIFIC REACTION [None]
